FAERS Safety Report 12559747 (Version 2)
Quarter: 2016Q3

REPORT INFORMATION
  Report Type: Spontaneous
  Country: US (occurrence: US)
  Receive Date: 20160715
  Receipt Date: 20160824
  Transmission Date: 20161109
  Serious: Yes (Other)
  Sender: FDA-Public Use
  Company Number: US-ACCORD-042350

PATIENT
  Age: 69 Year
  Sex: Female

DRUGS (1)
  1. GEMCITABINE/GEMCITABINE HYDROCHLORIDE [Suspect]
     Active Substance: GEMCITABINE\GEMCITABINE HYDROCHLORIDE
     Indication: BREAST CANCER METASTATIC
     Dosage: CYCLE 1, DAY 8 OF GEMCITABINE
     Dates: start: 201507

REACTIONS (3)
  - Rash [None]
  - Telangiectasia [None]
  - Microangiopathy [Recovered/Resolved]

NARRATIVE: CASE EVENT DATE: 201507
